FAERS Safety Report 6931694-4 (Version None)
Quarter: 2010Q3

REPORT INFORMATION
  Report Type: 
  Country: None (occurrence: None)
  Receive Date: 20100819
  Receipt Date: 20100715
  Transmission Date: 20110219
  Serious: No
  Sender: FDA-Public Use
  Company Number: US-PFIZER INC-2010089206

PATIENT
  Sex: Female
  Weight: 65.76 kg

DRUGS (4)
  1. CHANTIX [Suspect]
     Indication: SMOKING CESSATION THERAPY
     Dosage: 0.5 MG, DAILY
     Route: 048
     Dates: start: 20100706
  2. CHANTIX [Suspect]
     Dosage: 1 MG, 2X/DAY
     Route: 048
     Dates: start: 20100706
  3. MELOXICAM [Concomitant]
     Indication: ARTHRITIS
     Dosage: 7.5 MG, DAILY
     Dates: start: 20090101
  4. ALLEGRA [Concomitant]
     Indication: HYPERSENSITIVITY
     Dosage: 60 MG, AS NEEDED, UPTO TWO TIMES A DAY
     Route: 048
     Dates: start: 20070101

REACTIONS (3)
  - DECREASED APPETITE [None]
  - HYPERHIDROSIS [None]
  - TREMOR [None]
